FAERS Safety Report 5690671-4 (Version None)
Quarter: 2008Q2

REPORT INFORMATION
  Report Type: 
  Country: None (occurrence: None)
  Receive Date: 20080401
  Receipt Date: 20080325
  Transmission Date: 20081010
  Serious: Yes (Death, Other)
  Sender: FDA-Public Use
  Company Number: QA-WYE-H03277808

PATIENT
  Sex: Female

DRUGS (5)
  1. TYGACIL [Suspect]
     Indication: STAPHYLOCOCCAL INFECTION
     Route: 042
  2. TYGACIL [Suspect]
     Indication: SEPTIC SHOCK
  3. TYGACIL [Suspect]
     Indication: ACINETOBACTER INFECTION
  4. TYGACIL [Suspect]
     Indication: MULTIPLE-DRUG RESISTANCE
  5. TYGACIL [Suspect]
     Indication: SEPSIS

REACTIONS (2)
  - DRUG INEFFECTIVE [None]
  - MULTI-ORGAN FAILURE [None]
